FAERS Safety Report 4474560-9 (Version None)
Quarter: 2004Q4

REPORT INFORMATION
  Report Type: 
  Country: None (occurrence: None)
  Receive Date: 20041012
  Receipt Date: 20041004
  Transmission Date: 20050328
  Serious: Yes (Other)
  Sender: FDA-Public Use
  Company Number: 2003-04-0761

PATIENT
  Age: 71 Year
  Sex: Female
  Weight: 66 kg

DRUGS (5)
  1. REBETOL [Suspect]
     Indication: HEPATITIS C
     Dosage: 600 MG QD ORAL
     Route: 048
     Dates: start: 20020225, end: 20020909
  2. INTRON A [Suspect]
     Indication: HEPATITIS C
     Dosage: 6 MU QD-TIW* INTRAMUSCULAR - 6 MIU QD INTRAMUSCULAR : 6 MIU TIW INTRAMUSCULAR
     Route: 030
     Dates: start: 20020225, end: 20020310
  3. INTRON A [Suspect]
     Indication: HEPATITIS C
     Dosage: 6 MU QD-TIW* INTRAMUSCULAR - 6 MIU QD INTRAMUSCULAR : 6 MIU TIW INTRAMUSCULAR
     Route: 030
     Dates: start: 20020225, end: 20020830
  4. INTRON A [Suspect]
     Indication: HEPATITIS C
     Dosage: 6 MU QD-TIW* INTRAMUSCULAR - 6 MIU QD INTRAMUSCULAR : 6 MIU TIW INTRAMUSCULAR
     Route: 030
     Dates: start: 20020312, end: 20020830
  5. URSO [Concomitant]

REACTIONS (5)
  - ANAEMIA [None]
  - CEREBRAL INFARCTION [None]
  - DYSARTHRIA [None]
  - EYELID PTOSIS [None]
  - HAEMOLYSIS [None]
